FAERS Safety Report 4667116-6 (Version None)
Quarter: 2005Q2

REPORT INFORMATION
  Report Type: 
  Country: None (occurrence: None)
  Receive Date: 20050520
  Receipt Date: 20050325
  Transmission Date: 20051028
  Serious: Yes (Disabling)
  Sender: FDA-Public Use
  Company Number: PHBS2005IT04378

PATIENT
  Age: 72 Year
  Sex: Male

DRUGS (9)
  1. CONTRAMAL [Concomitant]
     Route: 065
  2. DELTACORTENE [Concomitant]
     Route: 065
  3. EPREX [Concomitant]
     Route: 065
  4. ENANTONE [Concomitant]
     Route: 065
  5. FARLUTAL [Concomitant]
     Route: 065
  6. ANDROCUR [Concomitant]
     Route: 065
  7. PANTECTA [Concomitant]
     Route: 065
  8. FERRO-GRAD [Concomitant]
     Route: 065
  9. ZOMETA [Suspect]
     Indication: METASTASES TO BONE
     Dosage: 4 MG, QMO
     Route: 042
     Dates: start: 20040207, end: 20040525

REACTIONS (4)
  - ASEPTIC NECROSIS BONE [None]
  - INFLAMMATION [None]
  - OSTEONECROSIS [None]
  - WOUND DEBRIDEMENT [None]
